FAERS Safety Report 6061338-8 (Version None)
Quarter: 2009Q1

REPORT INFORMATION
  Report Type: 
  Country: None (occurrence: None)
  Receive Date: 20090130
  Receipt Date: 20090130
  Transmission Date: 20090719
  Serious: Yes (Other)
  Sender: FDA-Public Use
  Company Number: None

PATIENT
  Age: 54 Year
  Sex: Male
  Weight: 107.9561 kg

DRUGS (1)
  1. MIDAZOLAM HCL [Suspect]
     Dosage: 1 AMP TWICE IV
     Route: 042
     Dates: start: 20081216, end: 20081216

REACTIONS (6)
  - AGGRESSION [None]
  - BLOOD GLUCOSE INCREASED [None]
  - INAPPROPRIATE AFFECT [None]
  - OXYGEN SATURATION DECREASED [None]
  - PARADOXICAL DRUG REACTION [None]
  - VERBAL ABUSE [None]
